FAERS Safety Report 24428284 (Version 6)
Quarter: 2025Q3

REPORT INFORMATION
  Report Type: Spontaneous
  Country: GB (occurrence: GB)
  Receive Date: 20241011
  Receipt Date: 20250919
  Transmission Date: 20251021
  Serious: Yes (Death, Other)
  Sender: TORRENT PHARMA INC.
  Company Number: None

PATIENT
  Age: 44 Year
  Sex: Female

DRUGS (5)
  1. DULOXETINE [Suspect]
     Active Substance: DULOXETINE
     Indication: Product used for unknown indication
     Dosage: 60 MILLIGRAMS PER DAY
     Route: 065
  2. VENLAFAXINE [Suspect]
     Active Substance: VENLAFAXINE HYDROCHLORIDE
     Indication: Depression
     Route: 065
  3. SODIUM NITRATE [Suspect]
     Active Substance: SODIUM NITRATE
     Indication: Product used for unknown indication
     Route: 065
  4. VENLAFAXINE HYDROCHLORIDE [Suspect]
     Active Substance: VENLAFAXINE HYDROCHLORIDE
     Indication: Product used for unknown indication
     Dosage: 37.5 MG, 1X PER DAY
     Route: 065
  5. VENLAFAXINE HYDROCHLORIDE [Suspect]
     Active Substance: VENLAFAXINE HYDROCHLORIDE
     Indication: Mental disorder
     Dosage: 150 MG, PER DAY
     Route: 048

REACTIONS (12)
  - Overdose [Fatal]
  - Suicidal ideation [Fatal]
  - Drug withdrawal syndrome [Fatal]
  - Mental disorder [Unknown]
  - Drug intolerance [Unknown]
  - Intentional overdose [Fatal]
  - Completed suicide [Fatal]
  - Crying [Unknown]
  - Partner stress [Unknown]
  - Derealisation [Unknown]
  - Hepatitis [Unknown]
  - Product label issue [Unknown]

NARRATIVE: CASE EVENT DATE: 20240501
